FAERS Safety Report 11292987 (Version 1)
Quarter: 2015Q3

REPORT INFORMATION
  Report Type: Spontaneous
  Country: ES (occurrence: ES)
  Receive Date: 20150722
  Receipt Date: 20150722
  Transmission Date: 20151125
  Serious: Yes (Other)
  Sender: FDA-Public Use
  Company Number: PHHY2015ES086428

PATIENT
  Age: 48 Year
  Sex: Female

DRUGS (2)
  1. ACETYLSALICYLIC ACID [Suspect]
     Active Substance: ASPIRIN
     Dosage: 50 MG, UNK
     Route: 065
  2. ACETYLSALICYLIC ACID [Suspect]
     Active Substance: ASPIRIN
     Indication: PRODUCT USED FOR UNKNOWN INDICATION
     Dosage: 500 MG, UNK
     Route: 065

REACTIONS (7)
  - Aspirin-exacerbated respiratory disease [Recovering/Resolving]
  - Nasal congestion [Recovering/Resolving]
  - Wheezing [Recovering/Resolving]
  - Rhinorrhoea [Recovering/Resolving]
  - Urticaria [Recovering/Resolving]
  - Rash pruritic [Recovering/Resolving]
  - Angioedema [Recovering/Resolving]
